FAERS Safety Report 20481556 (Version 1)
Quarter: 2022Q1

REPORT INFORMATION
  Report Type: Spontaneous
  Country: US (occurrence: None)
  Receive Date: 20220216
  Receipt Date: 20220216
  Transmission Date: 20220423
  Serious: No
  Sender: FDA-Public Use
  Company Number: None

PATIENT
  Sex: Female

DRUGS (7)
  1. ACTEMRA [Suspect]
     Active Substance: TOCILIZUMAB
     Indication: Rheumatoid arthritis
     Dosage: OTHER FREQUENCY : 162MG/0.9ML??INJECT 1 PEN UNDER THE SKIN (SUBCUTANEOUS INJECTION) EVERY 7 DAYS?
     Route: 058
     Dates: start: 20211222
  2. CLOBETASOL [Concomitant]
  3. FOLIC ACID [Concomitant]
     Active Substance: FOLIC ACID
  4. METHOTREXATE [Concomitant]
     Active Substance: METHOTREXATE
  5. MULTI VITAMN TAB MINERALS [Concomitant]
  6. NORETHINDRON [Concomitant]
  7. RINVOQ [Concomitant]
     Active Substance: UPADACITINIB

REACTIONS (2)
  - Infusion site reaction [None]
  - Therapy cessation [None]
